FAERS Safety Report 7535663-5 (Version None)
Quarter: 2011Q2

REPORT INFORMATION
  Report Type: 
  Country: None (occurrence: None)
  Receive Date: 20110609
  Receipt Date: 20110601
  Transmission Date: 20111010
  Serious: Yes (Death, Hospitalization)
  Sender: FDA-Public Use
  Company Number: JP-JNJFOC-20110207408

PATIENT
  Age: 36 Year
  Sex: Female
  Weight: 49 kg

DRUGS (15)
  1. RISPERDAL CONSTA [Suspect]
     Indication: SCHIZOPHRENIA
     Route: 030
     Dates: start: 20100501, end: 20100601
  2. NITRAZEPAM [Suspect]
     Route: 048
     Dates: start: 20100419, end: 20110210
  3. LAXOBERON [Concomitant]
     Route: 048
  4. RISPERDAL CONSTA [Suspect]
     Route: 030
     Dates: start: 20100501, end: 20100501
  5. DEPAKENE [Suspect]
     Route: 048
  6. RISPERDAL CONSTA [Suspect]
     Route: 030
     Dates: start: 20100601, end: 20110210
  7. NITRAZEPAM [Suspect]
     Indication: SCHIZOPHRENIA
     Route: 048
  8. LORAZEPAM [Concomitant]
     Route: 048
  9. AKINETON [Suspect]
     Indication: SCHIZOPHRENIA
     Route: 048
     Dates: start: 20100419, end: 20110210
  10. MUCOSTA [Concomitant]
     Route: 048
  11. FAMOTIDINE [Concomitant]
     Route: 048
  12. HALCION [Suspect]
     Indication: SCHIZOPHRENIA
     Route: 048
     Dates: start: 20100419, end: 20110210
  13. RISPERDAL [Suspect]
     Indication: SCHIZOPHRENIA
     Route: 048
  14. DEPAKENE [Suspect]
     Indication: SCHIZOPHRENIA
     Route: 048
     Dates: start: 20100419, end: 20110210
  15. LASIX [Concomitant]
     Route: 048

REACTIONS (9)
  - CARDIAC FAILURE [None]
  - CONDITION AGGRAVATED [None]
  - HYPERPHAGIA [None]
  - MYOCARDIAL INFARCTION [None]
  - SLEEP DISORDER [None]
  - VOMITING [None]
  - ABNORMAL BEHAVIOUR [None]
  - FATIGUE [None]
  - TOOTHACHE [None]
